FAERS Safety Report 8556599-7 (Version None)
Quarter: 2012Q3

REPORT INFORMATION
  Report Type: 
  Country: None (occurrence: None)
  Receive Date: 20120801
  Receipt Date: 20120724
  Transmission Date: 20120928
  Serious: Yes (Death, Hospitalization)
  Sender: FDA-Public Use
  Company Number: GB-SANOFI-AVENTIS-2011SA075027

PATIENT
  Sex: Female
  Weight: 66 kg

DRUGS (8)
  1. BEVACIZUMAB [Suspect]
     Dosage: DOSE LEVEL:15MG/KG
     Route: 042
     Dates: start: 20100716
  2. DOCETAXEL [Suspect]
     Route: 042
     Dates: start: 20100716
  3. DOCETAXEL [Suspect]
     Route: 042
     Dates: start: 20101105
  4. TRASTUZUMAB [Suspect]
     Dosage: DOSE: 6MG/KG
     Route: 042
     Dates: start: 20100716
  5. CARBOPLATIN [Suspect]
     Route: 042
     Dates: start: 20100716
  6. CARBOPLATIN [Suspect]
     Route: 042
     Dates: start: 20101105
  7. TRASTUZUMAB [Suspect]
     Dosage: DOSE: 6MG/KG
     Route: 042
     Dates: start: 20101105
  8. BEVACIZUMAB [Suspect]
     Dosage: DOSE LEVEL:15MG/KG
     Route: 042
     Dates: start: 20101008

REACTIONS (2)
  - ASPIRATION [None]
  - GASTROINTESTINAL INFECTION [None]
